FAERS Safety Report 7690828-7 (Version None)
Quarter: 2011Q3

REPORT INFORMATION
  Report Type: 
  Country: None (occurrence: None)
  Receive Date: 20110818
  Receipt Date: 20110808
  Transmission Date: 20111222
  Serious: Yes (Other)
  Sender: FDA-Public Use
  Company Number: US-AMGEN-USASP2011027964

PATIENT
  Age: 57 Year
  Sex: Female

DRUGS (1)
  1. ENBREL [Suspect]
     Indication: PSORIATIC ARTHROPATHY
     Dosage: 50 MG, QWK
     Dates: start: 20110504, end: 20110525

REACTIONS (10)
  - ERYTHEMA [None]
  - SKIN DISCOLOURATION [None]
  - SCAB [None]
  - HEADACHE [None]
  - DRUG INEFFECTIVE [None]
  - SKIN LESION [None]
  - OEDEMA PERIPHERAL [None]
  - GASTROOESOPHAGEAL REFLUX DISEASE [None]
  - BLOOD GLUCOSE INCREASED [None]
  - BLOOD GLUCOSE FLUCTUATION [None]
